FAERS Safety Report 10141675 (Version 3)
Quarter: 2014Q2

REPORT INFORMATION
  Report Type: Spontaneous
  Country: US (occurrence: US)
  Receive Date: 20140429
  Receipt Date: 20140527
  Transmission Date: 20141212
  Serious: Yes (Other)
  Sender: FDA-Public Use
  Company Number: US-ALLERGAN-1405507US

PATIENT
  Age: 88 Year
  Sex: Female
  Weight: 49.89 kg

DRUGS (10)
  1. BOTOX [Suspect]
     Indication: TORTICOLLIS
     Dosage: 1200 UNITS, SINGLE
     Route: 030
     Dates: start: 201401, end: 201401
  2. BOTOX [Suspect]
     Dosage: 900 UNITS, SINGLE
     Route: 030
     Dates: start: 1989, end: 1989
  3. CLONAZEPAM [Concomitant]
     Dosage: 0.5 MG, BID
  4. BUSPAR [Concomitant]
     Dosage: 10 MG, TID
  5. EVISTA [Concomitant]
     Indication: OSTEOPOROSIS
     Dosage: 60 MG, QD
  6. CALCIUM + VITAMIN D [Concomitant]
  7. RANITIDINE [Concomitant]
     Indication: GASTROOESOPHAGEAL REFLUX DISEASE
     Dosage: 150 MG, QD
  8. VITAMIN B [Concomitant]
     Route: 048
  9. PNEUMONIAE VACCINE [Concomitant]
     Indication: PROPHYLAXIS
     Dosage: UNK
     Route: 058
  10. FLU VACCINE [Concomitant]
     Indication: PROPHYLAXIS
     Dosage: UNK
     Route: 058

REACTIONS (9)
  - Transient ischaemic attack [Unknown]
  - Aortic valve sclerosis [Unknown]
  - Intervertebral disc protrusion [Not Recovered/Not Resolved]
  - Convulsion [Not Recovered/Not Resolved]
  - Aortic valve stenosis [Not Recovered/Not Resolved]
  - Abasia [Not Recovered/Not Resolved]
  - Off label use [Unknown]
  - Asthenia [Not Recovered/Not Resolved]
  - Dyspnoea [Not Recovered/Not Resolved]
